FAERS Safety Report 8180037-X (Version None)
Quarter: 2012Q1

REPORT INFORMATION
  Report Type: 
  Country: None (occurrence: None)
  Receive Date: 20120302
  Receipt Date: 20120223
  Transmission Date: 20120608
  Serious: Yes (Disabling)
  Sender: FDA-Public Use
  Company Number: GB-US-EMD SERONO, INC.-7093398

PATIENT
  Sex: Female

DRUGS (2)
  1. REBIF [Suspect]
     Indication: MULTIPLE SCLEROSIS
     Route: 058
     Dates: start: 20110927, end: 20111001
  2. REBIF [Suspect]
     Route: 058
     Dates: start: 20111202

REACTIONS (2)
  - CHEST PAIN [None]
  - PALPITATIONS [None]
